FAERS Safety Report 7152253 (Version 9)
Quarter: 2019Q1

REPORT INFORMATION
  Report Type: Spontaneous
  Country: CA (occurrence: CA)
  Receive Date: 20091019
  Receipt Date: 20190322
  Transmission Date: 20190418
  Serious: Yes (Other)
  Sender: FDA-Public Use
  Company Number: CA-PFIZER INC-2009279889

PATIENT
  Age: 52 Year
  Sex: Male

DRUGS (41)
  1. DIDANOSINE. [Suspect]
     Active Substance: DIDANOSINE
     Indication: HIV INFECTION
     Dosage: UNK
  2. STAVUDINE. [Suspect]
     Active Substance: STAVUDINE
     Indication: HIV INFECTION
     Dosage: UNK
     Route: 048
  3. LOPINAVIR [Suspect]
     Active Substance: LOPINAVIR
     Indication: HIV INFECTION
     Dosage: UNK
     Route: 065
  4. RESCRIPTOR [Suspect]
     Active Substance: DELAVIRDINE MESYLATE
     Indication: HIV INFECTION
     Dosage: UNK
     Route: 048
  5. ABACAVIR SULFATE. [Suspect]
     Active Substance: ABACAVIR SULFATE
     Indication: HIV INFECTION
     Dosage: UNK
     Route: 065
  6. PREZISTA [Suspect]
     Active Substance: DARUNAVIR ETHANOLATE
     Indication: HIV INFECTION
     Dosage: UNK
     Route: 048
  7. VIDEX EC [Suspect]
     Active Substance: DIDANOSINE
     Indication: HIV INFECTION
     Dosage: UNK
     Route: 048
  8. ZIAGEN [Suspect]
     Active Substance: ABACAVIR SULFATE
     Indication: HIV INFECTION
     Dosage: UNK
     Route: 048
  9. ABACAVIR SUCCINATE [Suspect]
     Active Substance: ABACAVIR SUCCINATE
     Indication: HIV INFECTION
     Dosage: UNK
  10. INDINAVIR SULFATE [Suspect]
     Active Substance: INDINAVIR SULFATE
     Indication: HIV INFECTION
     Dosage: UNK
     Route: 048
  11. CRIXIVAN [Suspect]
     Active Substance: INDINAVIR SULFATE
     Indication: HIV INFECTION
     Dosage: UNK
     Route: 048
  12. FUZEON [Suspect]
     Active Substance: ENFUVIRTIDE
     Indication: HIV INFECTION
     Dosage: SINGLE USE
     Route: 058
  13. ZERIT [Suspect]
     Active Substance: STAVUDINE
     Indication: HIV INFECTION
     Dosage: UNK
  14. ZIDOVUDINE. [Suspect]
     Active Substance: ZIDOVUDINE
     Indication: HIV INFECTION
     Dosage: UNK
     Route: 065
  15. INDINAVIR [Suspect]
     Active Substance: INDINAVIR
     Indication: HIV INFECTION
     Dosage: UNK
     Route: 065
  16. KALETRA [Suspect]
     Active Substance: LOPINAVIR\RITONAVIR
     Indication: HIV INFECTION
     Dosage: UNK
  17. SUSTIVA [Suspect]
     Active Substance: EFAVIRENZ
     Indication: HIV INFECTION
     Dosage: UNK
     Route: 048
  18. NORVIR [Suspect]
     Active Substance: RITONAVIR
     Indication: HIV INFECTION
     Dosage: UNK
  19. DELAVIRDINE MESYLATE [Suspect]
     Active Substance: DELAVIRDINE MESYLATE
     Indication: HIV INFECTION
     Dosage: UNK
     Route: 065
  20. NELFINAVIR MESILATE [Suspect]
     Active Substance: NELFINAVIR MESYLATE
     Indication: HIV INFECTION
     Dosage: UNK
     Route: 048
  21. LAMIVUDINE. [Suspect]
     Active Substance: LAMIVUDINE
     Indication: HIV INFECTION
     Dosage: UNK
     Route: 065
  22. ABACAVIR. [Suspect]
     Active Substance: ABACAVIR
     Indication: HIV INFECTION
     Dosage: UNK
  23. SAQUINAVIR [Suspect]
     Active Substance: SAQUINAVIR
     Indication: HIV INFECTION
     Dosage: UNK
     Route: 048
  24. RALTEGRAVIR. [Suspect]
     Active Substance: RALTEGRAVIR
     Indication: HIV INFECTION
     Dosage: UNK
  25. ENFUVIRTIDE. [Suspect]
     Active Substance: ENFUVIRTIDE
     Indication: HIV INFECTION
     Dosage: UNK
     Route: 058
  26. VIRACEPT [Suspect]
     Active Substance: NELFINAVIR MESYLATE
     Indication: HIV INFECTION
     Dosage: EVERY 9 MONTH
     Route: 048
  27. ETRAVIRINE [Suspect]
     Active Substance: ETRAVIRINE
     Indication: HIV INFECTION
     Dosage: UNK
  28. INTELENCE [Suspect]
     Active Substance: ETRAVIRINE
     Indication: HIV INFECTION
     Dosage: UNK
     Route: 048
  29. VIREAD [Suspect]
     Active Substance: TENOFOVIR DISOPROXIL FUMARATE
     Indication: HIV INFECTION
     Dosage: UNK
     Route: 048
  30. VIRAMUNE [Suspect]
     Active Substance: NEVIRAPINE
     Indication: HIV INFECTION
     Dosage: UNK
  31. RALTEGRAVIR POTASSIUM [Suspect]
     Active Substance: RALTEGRAVIR POTASSIUM
     Dosage: UNK
  32. DELAVIRDINE [Suspect]
     Active Substance: DELAVIRDINE
     Indication: HIV INFECTION
     Dosage: UNK
     Route: 065
  33. NEVIRAPINE. [Suspect]
     Active Substance: NEVIRAPINE
     Indication: HIV INFECTION
     Dosage: UNK
     Route: 065
  34. EFAVIRENZ. [Suspect]
     Active Substance: EFAVIRENZ
     Indication: HIV INFECTION
     Dosage: UNK
  35. TENOFOVIR [Suspect]
     Active Substance: TENOFOVIR
     Indication: HIV INFECTION
     Dosage: UNK
  36. DARUNAVIR [Suspect]
     Active Substance: DARUNAVIR
     Indication: HIV INFECTION
     Dosage: UNK
     Route: 065
  37. ETRAVIRINE [Suspect]
     Active Substance: ETRAVIRINE
     Dosage: UNK
  38. ISENTRESS [Suspect]
     Active Substance: RALTEGRAVIR POTASSIUM
     Indication: HIV INFECTION
     Dosage: 400 MG, UNK
     Route: 048
  39. LOPINAVIR/RITONAVIR [Suspect]
     Active Substance: LOPINAVIR\RITONAVIR
     Dosage: UNK
  40. RITONAVIR. [Suspect]
     Active Substance: RITONAVIR
     Indication: HIV INFECTION
     Dosage: UNK
     Route: 065
  41. TENOFOVIR DISOPROXIL FUMARATE. [Suspect]
     Active Substance: TENOFOVIR DISOPROXIL FUMARATE
     Dosage: UNK
     Route: 065

REACTIONS (7)
  - Progressive external ophthalmoplegia [Unknown]
  - Eyelid ptosis [Recovering/Resolving]
  - Extraocular muscle paresis [Unknown]
  - Mitochondrial toxicity [Recovering/Resolving]
  - Lipodystrophy acquired [Recovering/Resolving]
  - Diplopia [Recovering/Resolving]
  - Ophthalmoplegia [Recovering/Resolving]
